FAERS Safety Report 14537330 (Version 1)
Quarter: 2018Q1

REPORT INFORMATION
  Report Type: Spontaneous
  Country: US (occurrence: US)
  Receive Date: 20180215
  Receipt Date: 20180215
  Transmission Date: 20180509
  Serious: No
  Sender: FDA-Public Use
  Company Number: US-009507513-1801USA008883

PATIENT
  Sex: Female

DRUGS (1)
  1. NEXPLANON [Suspect]
     Active Substance: ETONOGESTREL
     Indication: CONTRACEPTION
     Dosage: ONE ROD/THREE YEARS
     Route: 059
     Dates: start: 2017

REACTIONS (5)
  - Menstruation irregular [Recovered/Resolved]
  - Adverse event [Unknown]
  - Menstruation irregular [Unknown]
  - Fall [Unknown]
  - Implant site bruising [Unknown]
